FAERS Safety Report 7452936-5 (Version None)
Quarter: 2011Q2

REPORT INFORMATION
  Report Type: 
  Country: None (occurrence: None)
  Receive Date: 20110502
  Receipt Date: 20101025
  Transmission Date: 20111010
  Serious: No
  Sender: FDA-Public Use
  Company Number: US-ASTRAZENECA-2010SE50480

PATIENT
  Sex: Female

DRUGS (2)
  1. NEXIUM [Suspect]
     Indication: DYSPEPSIA
     Route: 048
     Dates: start: 20101021
  2. NEXIUM [Suspect]
     Indication: PALPITATIONS
     Route: 048
     Dates: start: 20101021

REACTIONS (2)
  - NECK PAIN [None]
  - DRY MOUTH [None]
